APPROVED DRUG PRODUCT: DARUNAVIR
Active Ingredient: DARUNAVIR
Strength: 400MG
Dosage Form/Route: TABLET;ORAL
Application: A202136 | Product #004 | TE Code: AB
Applicant: MYLAN PHARMACEUTICALS INC
Approved: Jul 22, 2025 | RLD: No | RS: No | Type: RX